FAERS Safety Report 25360709 (Version 6)
Quarter: 2025Q3

REPORT INFORMATION
  Report Type: Spontaneous
  Country: US (occurrence: US)
  Receive Date: 20250527
  Receipt Date: 20250818
  Transmission Date: 20251021
  Serious: Yes (Hospitalization)
  Sender: BIOGEN
  Company Number: US-BIOGEN-2025BI01311912

PATIENT
  Sex: Female

DRUGS (2)
  1. SKYCLARYS [Suspect]
     Active Substance: OMAVELOXOLONE
     Indication: Friedreich^s ataxia
     Route: 050
     Dates: end: 20250616
  2. SKYCLARYS [Suspect]
     Active Substance: OMAVELOXOLONE
     Dosage: 150 MG DAILY
     Route: 050

REACTIONS (5)
  - Seizure [Recovered/Resolved]
  - Ejection fraction decreased [Unknown]
  - Mydriasis [Unknown]
  - Left ventricular dysfunction [Unknown]
  - Blood potassium decreased [Unknown]
